FAERS Safety Report 13826086 (Version 1)
Quarter: 2017Q3

REPORT INFORMATION
  Report Type: Spontaneous
  Country: ES (occurrence: ES)
  Receive Date: 20170802
  Receipt Date: 20170802
  Transmission Date: 20171127
  Serious: Yes (Death)
  Sender: FDA-Public Use
  Company Number: PHHY2017ES113377

PATIENT
  Sex: Female

DRUGS (9)
  1. CEFOTAXIME [Concomitant]
     Active Substance: CEFOTAXIME SODIUM
     Indication: ANTIBIOTIC THERAPY
     Route: 065
  2. AMIKACIN [Concomitant]
     Active Substance: AMIKACIN
     Indication: ANTIBIOTIC THERAPY
     Route: 065
  3. DOPAMINE [Concomitant]
     Active Substance: DOPAMINE\DOPAMINE HYDROCHLORIDE
     Indication: SUPPORTIVE CARE
     Route: 065
  4. SALINE [Concomitant]
     Active Substance: SODIUM CHLORIDE
     Indication: PRODUCT USED FOR UNKNOWN INDICATION
     Route: 065
  5. TETRACOSACTIDE [Suspect]
     Active Substance: COSYNTROPIN
     Indication: INFANTILE SPASMS
     Dosage: 5 IU/KG, QD
     Route: 030
  6. TETRACOSACTIDE [Suspect]
     Active Substance: COSYNTROPIN
     Dosage: 7.5 IU/KG, QD
     Route: 030
  7. TEICOPLANIN [Concomitant]
     Active Substance: TEICOPLANIN
     Indication: ANTIBIOTIC THERAPY
     Route: 065
  8. NOREPINEPHRINE. [Concomitant]
     Active Substance: NOREPINEPHRINE
     Indication: SUPPORTIVE CARE
     Route: 065
  9. EPINEPHRINE. [Concomitant]
     Active Substance: EPINEPHRINE
     Indication: SUPPORTIVE CARE
     Route: 065

REACTIONS (1)
  - Pneumocystis jirovecii pneumonia [Fatal]
